FAERS Safety Report 25466444 (Version 1)
Quarter: 2025Q2

REPORT INFORMATION
  Report Type: Spontaneous
  Country: US (occurrence: US)
  Receive Date: 20250623
  Receipt Date: 20250623
  Transmission Date: 20250717
  Serious: Yes (Hospitalization)
  Sender: ROCHE
  Company Number: US-ROCHE-10000313699

PATIENT
  Age: 69 Year
  Sex: Female
  Weight: 67.13 kg

DRUGS (2)
  1. ACTEMRA [Suspect]
     Active Substance: TOCILIZUMAB
     Indication: Giant cell arteritis
     Route: 058
  2. ACTEMRA [Suspect]
     Active Substance: TOCILIZUMAB

REACTIONS (5)
  - Ovarian neoplasm [Not Recovered/Not Resolved]
  - Oral soft tissue biopsy [Recovering/Resolving]
  - Haemorrhage [Recovered/Resolved]
  - Neoplasm of appendix [Unknown]
  - Uterine neoplasm [Not Recovered/Not Resolved]
